FAERS Safety Report 6694985-0 (Version None)
Quarter: 2010Q2

REPORT INFORMATION
  Report Type: 
  Country: None (occurrence: None)
  Receive Date: 20100423
  Receipt Date: 20100412
  Transmission Date: 20101027
  Serious: Yes (Other)
  Sender: FDA-Public Use
  Company Number: EG-WYE-H14538710

PATIENT
  Age: 55 Year
  Sex: Male

DRUGS (6)
  1. EFFEXOR [Suspect]
     Indication: DEPRESSION
     Route: 048
     Dates: start: 20090101
  2. CALCIUM CARBONATE [Concomitant]
  3. SERENASE [Concomitant]
     Indication: ANXIETY
     Route: 048
  4. THIOCTACID [Concomitant]
     Route: 048
  5. AMARYL [Concomitant]
     Indication: DIABETES MELLITUS
     Route: 048
  6. DIPRIVAN [Concomitant]
     Indication: DEPRESSION
     Route: 048

REACTIONS (1)
  - PROSTATE CANCER METASTATIC [None]
